FAERS Safety Report 23179630 (Version 6)
Quarter: 2024Q4

REPORT INFORMATION
  Report Type: Spontaneous
  Country: CA (occurrence: CA)
  Receive Date: 20231114
  Receipt Date: 20241119
  Transmission Date: 20250115
  Serious: Yes (Other)
  Sender: CELLTRION
  Company Number: CA-CELLTRION INC.-2023CA021813

PATIENT

DRUGS (8)
  1. INFLECTRA [Suspect]
     Active Substance: INFLIXIMAB-DYYB
     Indication: Crohn^s disease
     Dosage: 10 MG/KG, EVERY 6 WEEKS
     Route: 042
     Dates: start: 20211015
  2. INFLECTRA [Suspect]
     Active Substance: INFLIXIMAB-DYYB
     Dosage: 10 MG/KG, EVERY 6 WEEKS
     Route: 042
     Dates: start: 20230928
  3. INFLECTRA [Suspect]
     Active Substance: INFLIXIMAB-DYYB
     Dosage: 10 MG/KG, EVERY 6 WEEKS
     Route: 042
     Dates: start: 20241031
  4. CHOLESTYRAMINE [Concomitant]
     Active Substance: CHOLESTYRAMINE
     Dosage: UNK
  5. HUMIRA [Concomitant]
     Active Substance: ADALIMUMAB
     Dosage: 1 DF
  6. METHOTREXATE [Concomitant]
     Active Substance: METHOTREXATE
     Dosage: 1 DF
  7. PURINETHOL [Concomitant]
     Active Substance: MERCAPTOPURINE
     Dosage: 1 DF
  8. VITAMIN B12 [Concomitant]
     Active Substance: CYANOCOBALAMIN
     Dosage: 1 DF, MONTHLY (DOSAGE INFO: UNKNOWN, INJECTION EVERY MONTH)
     Route: 065
     Dates: start: 2009

REACTIONS (7)
  - Uveitis [Recovered/Resolved]
  - Scleritis [Unknown]
  - Oral herpes [Not Recovered/Not Resolved]
  - Herpes virus infection [Recovered/Resolved]
  - Floppy eyelid syndrome [Not Recovered/Not Resolved]
  - Conjunctivitis [Not Recovered/Not Resolved]
  - Herpes zoster [Not Recovered/Not Resolved]

NARRATIVE: CASE EVENT DATE: 20230101
